FAERS Safety Report 9726094 (Version 2)
Quarter: 2013Q4

REPORT INFORMATION
  Report Type: Spontaneous
  Country: FR (occurrence: FR)
  Receive Date: 20131203
  Receipt Date: 20131217
  Transmission Date: 20140711
  Serious: Yes (Other)
  Sender: FDA-Public Use
  Company Number: FR-ASTRAZENECA-2013SE73119

PATIENT
  Age: 8274 Day
  Sex: Female

DRUGS (5)
  1. AVLOCARDYL [Suspect]
     Route: 048
  2. ZOLPIDEM [Suspect]
     Route: 048
  3. OMEPRAZOLE [Suspect]
     Route: 048
  4. DESOGESTREL BIOGARAN [Suspect]
     Dates: start: 20130825, end: 20131107
  5. ZOMIGORO [Concomitant]
     Route: 048

REACTIONS (1)
  - Migraine [Recovering/Resolving]
